FAERS Safety Report 16438014 (Version 1)
Quarter: 2019Q2

REPORT INFORMATION
  Report Type: Report from Study
  Country: CO (occurrence: CO)
  Receive Date: 20190617
  Receipt Date: 20190617
  Transmission Date: 20190711
  Serious: No
  Sender: FDA-Public Use
  Company Number: CO-ROCHE-2336715

PATIENT
  Sex: Female

DRUGS (10)
  1. OCREVUS [Suspect]
     Active Substance: OCRELIZUMAB
     Indication: MULTIPLE SCLEROSIS
     Dosage: UNIQUE DOSAGE
     Route: 042
     Dates: start: 2019
  2. ENALAPRIL [Concomitant]
     Active Substance: ENALAPRIL
  3. ACETAMINOPHEN. [Concomitant]
     Active Substance: ACETAMINOPHEN
  4. LEVOTHYROXINE. [Concomitant]
     Active Substance: LEVOTHYROXINE
  5. HYDROCODONE [Concomitant]
     Active Substance: HYDROCODONE
  6. SITAGLIPTIN [Concomitant]
     Active Substance: SITAGLIPTIN
  7. INSULIN GLARGINE [Concomitant]
     Active Substance: INSULIN GLARGINE
  8. ALENDRONATE [Concomitant]
     Active Substance: ALENDRONATE SODIUM
  9. METFORMIN [Concomitant]
     Active Substance: METFORMIN HYDROCHLORIDE
     Route: 065
  10. APIXABAN [Concomitant]
     Active Substance: APIXABAN

REACTIONS (2)
  - Cough [Recovering/Resolving]
  - Nasopharyngitis [Unknown]
